FAERS Safety Report 4341140-5 (Version None)
Quarter: 2004Q2

REPORT INFORMATION
  Report Type: 
  Country: None (occurrence: None)
  Receive Date: 20040419
  Receipt Date: 20040330
  Transmission Date: 20050107
  Serious: Yes (Other)
  Sender: FDA-Public Use
  Company Number: US-GLAXOSMITHKLINE-A0505133A

PATIENT
  Age: 35 Year
  Sex: Female

DRUGS (2)
  1. PAXIL [Suspect]
     Indication: ILL-DEFINED DISORDER
     Route: 048
     Dates: start: 20031201
  2. DEXEDRINE [Suspect]
     Indication: DEPRESSION
     Route: 048

REACTIONS (6)
  - AGGRESSION [None]
  - DELUSION [None]
  - DRUG INTERACTION [None]
  - IMPRISONMENT [None]
  - PARANOIA [None]
  - THEFT [None]
